FAERS Safety Report 4529506-1 (Version None)
Quarter: 2004Q4

REPORT INFORMATION
  Report Type: 
  Country: None (occurrence: None)
  Receive Date: 20041214
  Receipt Date: 20040706
  Transmission Date: 20050328
  Serious: Yes (Other)
  Sender: FDA-Public Use
  Company Number: US-JNJFOC-20040600482

PATIENT
  Age: 61 Year
  Sex: Female

DRUGS (9)
  1. UNSPECIFIED IBUPROFEN PRODUCT (IBUPROFEN) UNSPECIFIED [Suspect]
     Indication: DRUG USE FOR UNKNOWN INDICATION
  2. METFORMIN (METFORMIN) [Suspect]
     Indication: DIABETES MELLITUS NON-INSULIN-DEPENDENT
  3. LISINOPRIL [Suspect]
     Indication: DRUG USE FOR UNKNOWN INDICATION
  4. ASPIRIN [Concomitant]
  5. ATENOLOL [Concomitant]
  6. CLOPIDOGREL (CLOPIDOGREL) [Concomitant]
  7. AMLODIPINE [Concomitant]
  8. STARLIX [Concomitant]
  9. NITRATE (ORGANIC NITRATES) [Concomitant]

REACTIONS (10)
  - BLOOD GLUCOSE DECREASED [None]
  - DRUG INEFFECTIVE [None]
  - HAEMODIALYSIS [None]
  - HEART RATE DECREASED [None]
  - HYPOTENSION [None]
  - LACTIC ACIDOSIS [None]
  - LIVER FUNCTION TEST ABNORMAL [None]
  - PANCREATITIS [None]
  - RENAL FAILURE ACUTE [None]
  - THERAPEUTIC AGENT TOXICITY [None]
